FAERS Safety Report 14160316 (Version 2)
Quarter: 2017Q4

REPORT INFORMATION
  Report Type: Report from Study
  Country: None (occurrence: CO)
  Receive Date: 20171104
  Receipt Date: 20171206
  Transmission Date: 20180321
  Serious: Yes (Other)
  Sender: FDA-Public Use
  Company Number: CO-ABBVIE-17K-036-2152118-00

PATIENT
  Age: 53 Year
  Sex: Male
  Weight: 65 kg

DRUGS (1)
  1. HUMIRA [Suspect]
     Active Substance: ADALIMUMAB
     Indication: ANKYLOSING SPONDYLITIS
     Route: 058
     Dates: start: 20101006, end: 20170425

REACTIONS (2)
  - Haematuria [Not Recovered/Not Resolved]
  - Prostatic cyst [Not Recovered/Not Resolved]

NARRATIVE: CASE EVENT DATE: 20171018
